FAERS Safety Report 8101787-7 (Version None)
Quarter: 2012Q1

REPORT INFORMATION
  Report Type: 
  Country: None (occurrence: None)
  Receive Date: 20120131
  Receipt Date: 20120125
  Transmission Date: 20120608
  Serious: Yes (Hospitalization)
  Sender: FDA-Public Use
  Company Number: PHHY2012VE007444

PATIENT
  Sex: Male

DRUGS (4)
  1. SEROQUEL XR [Concomitant]
     Dosage: 600 MG, QD
     Route: 048
     Dates: start: 20111101
  2. SEROQUEL XR [Concomitant]
     Dosage: 300 MG ONCE A DAY
     Route: 048
     Dates: start: 20100101, end: 20111101
  3. TRILEPTAL [Suspect]
     Dosage: 1200 MG, BID
     Dates: start: 20111101
  4. TRILEPTAL [Suspect]
     Indication: SCHIZOPHRENIA
     Dosage: 600 MG, ONCE A DAY
     Route: 048
     Dates: start: 19960101

REACTIONS (4)
  - HALLUCINATION [None]
  - CONVULSION [None]
  - PANIC DISORDER [None]
  - DEPRESSION [None]
